FAERS Safety Report 16674555 (Version 6)
Quarter: 2020Q4

REPORT INFORMATION
  Report Type: Spontaneous
  Country: US (occurrence: US)
  Receive Date: 20190806
  Receipt Date: 20201009
  Transmission Date: 20210113
  Serious: Yes (Other)
  Sender: FDA-Public Use
  Company Number: US-SA-2019SA209995

PATIENT

DRUGS (4)
  1. ALPROLIX [Suspect]
     Active Substance: EFTRENONACOG ALFA
     Dosage: 5052 IU, QW
     Route: 041
  2. ALPROLIX [Suspect]
     Active Substance: EFTRENONACOG ALFA
     Dosage: 5052 IU, QW
     Route: 041
  3. ALPROLIX [Suspect]
     Active Substance: EFTRENONACOG ALFA
     Dosage: 5100 IU
     Route: 041
  4. ALPROLIX [Suspect]
     Active Substance: EFTRENONACOG ALFA
     Dosage: 5100 IU
     Route: 041

REACTIONS (6)
  - Haemarthrosis [Recovered/Resolved]
  - Spontaneous haemorrhage [Unknown]
  - Post-traumatic pain [Recovered/Resolved]
  - Traumatic haemorrhage [Recovered/Resolved]
  - Haemarthrosis [Unknown]
  - Limb injury [Recovered/Resolved]

NARRATIVE: CASE EVENT DATE: 20190729
